FAERS Safety Report 20711445 (Version 2)
Quarter: 2022Q4

REPORT INFORMATION
  Report Type: Spontaneous
  Country: FR (occurrence: FR)
  Receive Date: 20220414
  Receipt Date: 20221021
  Transmission Date: 20230112
  Serious: Yes (Death, Other)
  Sender: FDA-Public Use
  Company Number: None

PATIENT
  Age: 37 Year
  Sex: Male
  Weight: 60 kg

DRUGS (3)
  1. PIPERACILLIN SODIUM\TAZOBACTAM SODIUM [Suspect]
     Active Substance: PIPERACILLIN SODIUM\TAZOBACTAM SODIUM
     Indication: Sepsis
     Dosage: UNK
     Route: 042
     Dates: start: 20211128, end: 20211221
  2. VANCOMYCIN [Suspect]
     Active Substance: VANCOMYCIN
     Indication: Sepsis
     Dosage: UNK
     Route: 042
     Dates: start: 20211128, end: 20211206
  3. PEMBROLIZUMAB [Suspect]
     Active Substance: PEMBROLIZUMAB
     Indication: Rectal adenocarcinoma
     Dosage: UNK
     Route: 042
     Dates: start: 20211126, end: 20211126

REACTIONS (4)
  - General physical health deterioration [Fatal]
  - Acute kidney injury [Fatal]
  - Thrombotic microangiopathy [Fatal]
  - Epilepsy [Fatal]

NARRATIVE: CASE EVENT DATE: 20211130
